FAERS Safety Report 11446183 (Version 3)
Quarter: 2017Q3

REPORT INFORMATION
  Report Type: Report from Study
  Country: US (occurrence: US)
  Receive Date: 20150902
  Receipt Date: 20170920
  Transmission Date: 20171127
  Serious: Yes (Hospitalization)
  Sender: FDA-Public Use
  Company Number: US-ACTELION-A-NJ2015-123323

PATIENT
  Age: 85 Year
  Sex: Female
  Weight: 43.84 kg

DRUGS (2)
  1. TRACLEER [Suspect]
     Active Substance: BOSENTAN
     Indication: PULMONARY ARTERIAL HYPERTENSION
     Dosage: 125 MG, BID
     Route: 048
  2. COUMADIN [Concomitant]
     Active Substance: WARFARIN SODIUM

REACTIONS (5)
  - Fluid retention [Unknown]
  - Cardioversion [Unknown]
  - Pulmonary oedema [Unknown]
  - Heart rate increased [Unknown]
  - Atrial fibrillation [Unknown]
